FAERS Safety Report 8618783 (Version 10)
Quarter: 2012Q4

REPORT INFORMATION
  Report Type: Report from Study
  Country: BE (occurrence: BE)
  Receive Date: 20120618
  Receipt Date: 20121008
  Transmission Date: 20130627
  Serious: Yes (Hospitalization)
  Sender: FDA-Public Use
  Company Number: BE-JNJFOC-20120410888

PATIENT
  Age: 69 Year
  Sex: Male

DRUGS (52)
  1. ABIRATERONE ACETATE [Suspect]
     Route: 048
  2. ABIRATERONE ACETATE [Suspect]
     Indication: PROSTATE CANCER METASTATIC
     Route: 048
     Dates: start: 20100204, end: 20120712
  3. PREDNISOLONE [Suspect]
     Indication: PROSTATE CANCER METASTATIC
     Route: 048
     Dates: start: 20100204
  4. ZOLADEX [Concomitant]
     Indication: HORMONE THERAPY
     Route: 058
     Dates: start: 200612
  5. ZOMETA [Concomitant]
     Indication: PROSTATE CANCER
     Route: 065
     Dates: start: 200612
  6. CALCIUM AND VITAMIN D3 [Concomitant]
     Indication: PROPHYLAXIS
     Route: 048
     Dates: start: 20110418
  7. RANITIDINE [Concomitant]
     Indication: DYSPEPSIA
     Route: 048
     Dates: start: 20110923, end: 20120603
  8. DAFALGAN FORTE [Concomitant]
     Indication: PAIN
     Route: 048
     Dates: start: 20120606, end: 20120606
  9. DAFALGAN FORTE [Concomitant]
     Indication: PAIN
     Route: 048
     Dates: start: 20120301
  10. DAFALGAN FORTE [Concomitant]
     Indication: CANCER PAIN
     Route: 048
     Dates: start: 20120606, end: 20120606
  11. DAFALGAN FORTE [Concomitant]
     Indication: CANCER PAIN
     Route: 048
     Dates: start: 20120301
  12. MONURIL [Concomitant]
     Indication: URINARY TRACT INFECTION
     Dosage: once only
     Route: 048
     Dates: start: 201204, end: 201204
  13. PARACETAMOL [Concomitant]
     Indication: PNEUMOTHORAX
     Route: 042
     Dates: start: 20120603, end: 20120603
  14. PARACETAMOL [Concomitant]
     Indication: PNEUMOTHORAX
     Route: 042
     Dates: start: 20120604, end: 20120604
  15. PARACETAMOL [Concomitant]
     Indication: PNEUMOTHORAX
     Route: 042
     Dates: start: 20120611, end: 20120611
  16. PARACETAMOL [Concomitant]
     Indication: PNEUMOTHORAX
     Route: 042
     Dates: start: 20120606, end: 20120606
  17. PARACETAMOL [Concomitant]
     Indication: PNEUMOTHORAX
     Route: 042
     Dates: start: 20120514, end: 20120523
  18. AMOXICILLINE [Concomitant]
     Indication: BRONCHITIS
     Route: 048
     Dates: start: 201204, end: 201204
  19. LYSOMUCIL [Concomitant]
     Indication: BRONCHITIS
     Route: 048
     Dates: start: 201204, end: 201204
  20. DUOVENT [Concomitant]
     Indication: BRONCHITIS
     Route: 055
     Dates: start: 201204, end: 201204
  21. CONTRAMAL [Concomitant]
     Indication: PNEUMOTHORAX
     Route: 042
     Dates: start: 20120515, end: 20120520
  22. LITICAN [Concomitant]
     Indication: MALAISE
     Route: 042
     Dates: start: 20120515, end: 20120520
  23. LITICAN [Concomitant]
     Indication: MALAISE
     Route: 042
     Dates: start: 20120603, end: 20120606
  24. LITICAN [Concomitant]
     Indication: MALAISE
     Route: 042
     Dates: start: 20120604, end: 20120606
  25. LITICAN [Concomitant]
     Indication: VOMITING
     Route: 042
     Dates: start: 20120603, end: 20120606
  26. LITICAN [Concomitant]
     Indication: VOMITING
     Route: 042
     Dates: start: 20120604, end: 20120606
  27. LITICAN [Concomitant]
     Indication: VOMITING
     Route: 042
     Dates: start: 20120515, end: 20120520
  28. LITICAN [Concomitant]
     Indication: NAUSEA
     Route: 042
     Dates: start: 20120603, end: 20120606
  29. LITICAN [Concomitant]
     Indication: NAUSEA
     Route: 042
     Dates: start: 20120604, end: 20120606
  30. LITICAN [Concomitant]
     Indication: NAUSEA
     Route: 042
     Dates: start: 20120515, end: 20120520
  31. STILNOCT [Concomitant]
     Indication: INSOMNIA
     Route: 048
     Dates: start: 20120605
  32. STILNOCT [Concomitant]
     Indication: INSOMNIA
     Route: 048
     Dates: start: 20120515, end: 20120516
  33. TAZOCIN [Concomitant]
     Indication: INFECTION
     Route: 042
     Dates: start: 20120603, end: 20120612
  34. TAZOCIN [Concomitant]
     Indication: INFECTION
     Route: 042
     Dates: start: 20120613, end: 20120613
  35. VANCOCIN [Concomitant]
     Indication: INFECTION
     Route: 042
     Dates: start: 20120613, end: 20120613
  36. VANCOCIN [Concomitant]
     Indication: INFECTION
     Route: 042
     Dates: start: 20120610, end: 20120612
  37. VANCOCIN [Concomitant]
     Indication: INFECTION
     Route: 042
     Dates: start: 20120608, end: 20120609
  38. VANCOCIN [Concomitant]
     Indication: INFECTION
     Route: 042
     Dates: start: 20120607, end: 20120607
  39. VANCOCIN [Concomitant]
     Indication: INFECTION
     Route: 042
     Dates: start: 20120604, end: 20120606
  40. VANCOCIN [Concomitant]
     Indication: INFECTION
     Route: 042
     Dates: start: 20120603, end: 20120603
  41. TAVANIC [Concomitant]
     Indication: LUNG INFECTION
     Route: 048
     Dates: start: 20120614, end: 20120619
  42. TAVANIC [Concomitant]
     Indication: LUNG INFECTION
     Route: 048
     Dates: start: 20120613, end: 20120613
  43. DALACIN [Concomitant]
     Indication: LUNG INFECTION
     Route: 048
     Dates: start: 20120614, end: 20120620
  44. DALACIN [Concomitant]
     Indication: LUNG INFECTION
     Route: 048
     Dates: start: 20120613, end: 20120613
  45. CLEXANE [Concomitant]
     Indication: PULMONARY EMBOLISM
     Route: 058
     Dates: start: 20120606, end: 20120614
  46. LOSEC [Concomitant]
     Indication: PROPHYLAXIS
     Route: 042
     Dates: start: 20120605, end: 20120606
  47. POTASSIUM CHLORIDE [Concomitant]
     Indication: BLOOD POTASSIUM DECREASED
     Route: 042
     Dates: start: 20120605, end: 20120612
  48. SOLU CORTEF [Concomitant]
     Indication: LUNG INFECTION
     Route: 042
     Dates: start: 20120606, end: 20120606
  49. SOLU CORTEF [Concomitant]
     Indication: LUNG INFECTION
     Route: 042
     Dates: start: 20120605, end: 20120605
  50. SOLU CORTEF [Concomitant]
     Indication: LUNG INFECTION
     Route: 042
     Dates: start: 20120604, end: 20120604
  51. PANTOPRAZOL [Concomitant]
     Indication: PROPHYLAXIS
     Route: 048
     Dates: start: 20120608
  52. PREDNISONE [Concomitant]
     Indication: PROSTATE CANCER
     Route: 048
     Dates: start: 20120713

REACTIONS (5)
  - Malaise [Recovered/Resolved]
  - Pneumothorax [Recovered/Resolved]
  - Pneumothorax [Recovered/Resolved]
  - Back pain [Recovered/Resolved]
  - Lung infection [Recovered/Resolved]
